FAERS Safety Report 10368837 (Version 1)
Quarter: 2014Q3

REPORT INFORMATION
  Report Type: Spontaneous
  Country: US (occurrence: US)
  Receive Date: 20140807
  Receipt Date: 20140807
  Transmission Date: 20150326
  Serious: Yes (Other)
  Sender: FDA-Public Use
  Company Number: US-PFIZER INC-2014216545

PATIENT
  Age: 51 Year
  Sex: Male
  Weight: 90.7 kg

DRUGS (7)
  1. EFFEXOR XR [Suspect]
     Active Substance: VENLAFAXINE HYDROCHLORIDE
     Indication: DEPRESSION
     Dosage: 75 MG, 1X/DAY
     Route: 048
     Dates: start: 2014, end: 2014
  2. EFFEXOR XR [Suspect]
     Active Substance: VENLAFAXINE HYDROCHLORIDE
     Indication: ATTENTION DEFICIT/HYPERACTIVITY DISORDER
  3. IBUPROFEN. [Concomitant]
     Active Substance: IBUPROFEN
     Indication: LIMB INJURY
     Dosage: UNK
  4. SOMA [Concomitant]
     Active Substance: CARISOPRODOL
     Dosage: 350 MG, 3X/DAY
  5. EFFEXOR XR [Suspect]
     Active Substance: VENLAFAXINE HYDROCHLORIDE
     Indication: PANIC DISORDER
     Dosage: 150 MG, 1X/DAY
     Route: 048
     Dates: start: 2014, end: 20140711
  6. EFFEXOR XR [Suspect]
     Active Substance: VENLAFAXINE HYDROCHLORIDE
     Indication: ANXIETY DISORDER
  7. VICODIN [Concomitant]
     Active Substance: ACETAMINOPHEN\HYDROCODONE BITARTRATE
     Indication: LIMB INJURY
     Dosage: UNK

REACTIONS (15)
  - Drug intolerance [Recovering/Resolving]
  - Insomnia [Recovering/Resolving]
  - Nervous system disorder [Recovering/Resolving]
  - Paranoia [Recovering/Resolving]
  - Sleep terror [Recovering/Resolving]
  - Feeling abnormal [Recovering/Resolving]
  - Aggression [Recovering/Resolving]
  - Abnormal behaviour [Recovering/Resolving]
  - Social avoidant behaviour [Recovering/Resolving]
  - Suicidal ideation [Recovering/Resolving]
  - Hallucination [Recovering/Resolving]
  - Thinking abnormal [Recovering/Resolving]
  - Homicidal ideation [Recovering/Resolving]
  - Amnesia [Recovering/Resolving]
  - Headache [Recovering/Resolving]

NARRATIVE: CASE EVENT DATE: 2014
